FAERS Safety Report 18818380 (Version 3)
Quarter: 2021Q1

REPORT INFORMATION
  Report Type: Report from Study
  Country: None (occurrence: OM)
  Receive Date: 20210202
  Receipt Date: 20210311
  Transmission Date: 20210419
  Serious: Yes (Hospitalization, Other)
  Sender: FDA-Public Use
  Company Number: OM-ABBVIE-21K-123-3751393-00

PATIENT
  Age: 22 Year
  Sex: Male

DRUGS (4)
  1. FOLIC ACID. [Concomitant]
     Active Substance: FOLIC ACID
     Indication: COLITIS ULCERATIVE
     Route: 048
  2. PREDNISONE. [Concomitant]
     Active Substance: PREDNISONE
     Indication: COLITIS ULCERATIVE
     Route: 048
  3. HUMIRA [Suspect]
     Active Substance: ADALIMUMAB
     Route: 058
     Dates: start: 20210216
  4. HUMIRA [Suspect]
     Active Substance: ADALIMUMAB
     Indication: COLITIS ULCERATIVE
     Route: 058
     Dates: start: 20201230

REACTIONS (4)
  - Fatigue [Recovered/Resolved]
  - Pyrexia [Recovered/Resolved]
  - Pus in stool [Recovered/Resolved]
  - Diarrhoea haemorrhagic [Recovered/Resolved]

NARRATIVE: CASE EVENT DATE: 20210126
